FAERS Safety Report 9202133 (Version 2)
Quarter: 2013Q2

REPORT INFORMATION
  Report Type: Report from Study
  Country: GB (occurrence: GB)
  Receive Date: 20130401
  Receipt Date: 20130522
  Transmission Date: 20140414
  Serious: Yes (Other)
  Sender: FDA-Public Use
  Company Number: GB-AMGEN-GBRCT2012034662

PATIENT
  Age: 70 Year
  Sex: Female
  Weight: 83.2 kg

DRUGS (13)
  1. ETANERCEPT [Suspect]
     Indication: PRODUCT USED FOR UNKNOWN INDICATION
     Dosage: 50 MG, WEEKLY
     Dates: start: 20110204, end: 20110517
  2. AMITRIPTYLINE [Concomitant]
     Dosage: UNK
     Dates: start: 20060724
  3. FOSINOPRIL [Concomitant]
     Dosage: UNK
     Dates: start: 20060724
  4. MERBENTYL [Concomitant]
     Dosage: UNK
     Dates: start: 20060724
  5. METFORMIN [Concomitant]
     Dosage: UNK
     Dates: start: 20060724
  6. NITROFURANTOIN [Concomitant]
     Dosage: UNK
     Dates: start: 20060724
  7. ACETYLSALICYLIC ACID [Concomitant]
     Dosage: UNK
     Dates: start: 20110224
  8. INSULIN [Concomitant]
     Dosage: UNK
     Dates: start: 20110224
  9. METHOTREXATE [Concomitant]
     Dosage: UNK
     Dates: start: 20060512
  10. AMLODIPINE [Concomitant]
     Dosage: UNK
     Dates: start: 20120324
  11. BENDROFLUMETHIAZIDE [Concomitant]
     Dosage: UNK
     Dates: start: 20120324
  12. FOLIC ACID [Concomitant]
     Dosage: UNK
     Dates: start: 20120324
  13. NOVOMIX [Concomitant]
     Dosage: UNK
     Dates: start: 20120324

REACTIONS (1)
  - Rectal cancer [Not Recovered/Not Resolved]
